FAERS Safety Report 10194741 (Version 1)
Quarter: 2014Q2

REPORT INFORMATION
  Report Type: Spontaneous
  Country: FR (occurrence: FR)
  Receive Date: 20140526
  Receipt Date: 20140526
  Transmission Date: 20141212
  Serious: Yes (Other)
  Sender: FDA-Public Use
  Company Number: FR-BRISTOL-MYERS SQUIBB COMPANY-20819884

PATIENT
  Age: 66 Year
  Sex: Male

DRUGS (2)
  1. ERBITUX SOLN FOR INF [Suspect]
     Indication: LARYNGEAL SQUAMOUS CELL CARCINOMA
     Dosage: 21DEC12-21DEC12:400MG/M2?28DEC12-27SEP13:272DAYS:35.7143MG/M2
     Route: 042
     Dates: start: 20121221
  2. PACLITAXEL [Suspect]
     Indication: LARYNGEAL SQUAMOUS CELL CARCINOMA
     Dosage: 02AUG13-20SEP13?20JAN14-20JAN14
     Route: 042
     Dates: start: 20130802, end: 20140120

REACTIONS (1)
  - Peripheral arterial occlusive disease [Not Recovered/Not Resolved]
